FAERS Safety Report 9843995 (Version 1)
Quarter: 2013Q4

REPORT INFORMATION
  Report Type: Spontaneous
  Country: US (occurrence: None)
  Receive Date: 20131223
  Receipt Date: 20131223
  Transmission Date: 20140711
  Serious: No
  Sender: FDA-Public Use
  Company Number: 1000050707

PATIENT
  Age: 57 Year
  Sex: Female

DRUGS (2)
  1. LINZESS (LINACLOTIDE) (145 MICROGRAM, CAPSULES) [Suspect]
     Indication: CONSTIPATION
     Dosage: 145 MCG (145 MCG, 1 IN 1 D), ORAL
     Route: 048
     Dates: start: 20131029
  2. SINGULAIR (MONTELUKAST SODIUM) (MONTELUKAST SODIUM) [Concomitant]

REACTIONS (1)
  - Drug ineffective [None]
